FAERS Safety Report 25255789 (Version 1)
Quarter: 2025Q2

REPORT INFORMATION
  Report Type: Spontaneous
  Country: US (occurrence: None)
  Receive Date: 20250429
  Receipt Date: 20250429
  Transmission Date: 20250717
  Serious: Yes (Other)
  Sender: FDA-CTU
  Company Number: None

PATIENT
  Age: 70 Year
  Sex: Male
  Weight: 85.5 kg

DRUGS (1)
  1. NUPLAZID [Suspect]
     Active Substance: PIMAVANSERIN TARTRATE
     Dosage: OTHER QUANTITY : 30 CAPSULE(S);?FREQUENCY : AT BEDTIME;?
     Route: 048
     Dates: start: 20250101

REACTIONS (3)
  - Joint swelling [None]
  - Peripheral swelling [None]
  - Peripheral swelling [None]

NARRATIVE: CASE EVENT DATE: 20250429
